FAERS Safety Report 11113910 (Version 2)
Quarter: 2015Q2

REPORT INFORMATION
  Report Type: Report from Study
  Country: VE (occurrence: VE)
  Receive Date: 20150514
  Receipt Date: 20150605
  Transmission Date: 20150821
  Serious: Yes (Other)
  Sender: FDA-Public Use
  Company Number: VE-ABBVIE-15K-178-1390267-00

PATIENT
  Age: 53 Year
  Sex: Female
  Weight: 89 kg

DRUGS (1)
  1. HUMIRA [Suspect]
     Active Substance: ADALIMUMAB
     Indication: PSORIASIS
     Route: 058
     Dates: start: 20120829, end: 201502

REACTIONS (1)
  - B-cell lymphoma [Recovering/Resolving]

NARRATIVE: CASE EVENT DATE: 201502
